FAERS Safety Report 6635219-2 (Version None)
Quarter: 2010Q1

REPORT INFORMATION
  Report Type: 
  Country: None (occurrence: None)
  Receive Date: 20100312
  Receipt Date: 20100312
  Transmission Date: 20100710
  Serious: Yes (Life-Threatening, Hospitalization)
  Sender: FDA-Public Use
  Company Number: None

PATIENT
  Age: 74 Year
  Sex: Male
  Weight: 74 kg

DRUGS (2)
  1. NITROFURANTOIN [Suspect]
     Indication: DRUG TOXICITY
     Dosage: 100 MG EVERY DAY PO
     Route: 048
     Dates: start: 20100222, end: 20100225
  2. NITROFURANTOIN [Suspect]
     Indication: UPPER RESPIRATORY TRACT INFECTION
     Dosage: 100 MG EVERY DAY PO
     Route: 048
     Dates: start: 20100222, end: 20100225

REACTIONS (5)
  - DRUG TOXICITY [None]
  - DYSPNOEA [None]
  - LUNG INFILTRATION [None]
  - NO THERAPEUTIC RESPONSE [None]
  - PULMONARY OEDEMA [None]
